FAERS Safety Report 4612262-6 (Version None)
Quarter: 2005Q2

REPORT INFORMATION
  Report Type: 
  Country: None (occurrence: None)
  Receive Date: 20050308
  Receipt Date: 20041119
  Transmission Date: 20051028
  Serious: Yes (Other)
  Sender: FDA-Public Use
  Company Number: 2004UW23798

PATIENT
  Age: 67 Year
  Sex: Female
  Weight: 60.781 kg

DRUGS (2)
  1. CRESTOR [Suspect]
     Indication: BLOOD CHOLESTEROL INCREASED
     Dosage: 10 MG DAILY PO
     Route: 048
     Dates: start: 20040301
  2. FOSAMAX [Concomitant]

REACTIONS (2)
  - CYANOSIS [None]
  - OEDEMA PERIPHERAL [None]
